FAERS Safety Report 7653065-8 (Version None)
Quarter: 2011Q3

REPORT INFORMATION
  Report Type: 
  Country: None (occurrence: None)
  Receive Date: 20110803
  Receipt Date: 20110728
  Transmission Date: 20111222
  Serious: Yes (Death, Other)
  Sender: FDA-Public Use
  Company Number: CA-PFIZER INC-2011121112

PATIENT
  Age: 38 Year
  Sex: Male
  Weight: 60 kg

DRUGS (3)
  1. VORICONAZOLE [Suspect]
     Dosage: 200 MG, 2X/DAY
     Route: 048
     Dates: start: 20110511, end: 20110519
  2. VORICONAZOLE [Suspect]
     Dosage: UNK
     Route: 042
     Dates: start: 20110505, end: 20110511
  3. VORICONAZOLE [Suspect]
     Indication: ASPERGILLOSIS
     Dosage: UNK
     Route: 048
     Dates: start: 20110101, end: 20110501

REACTIONS (3)
  - LUNG LOBECTOMY [None]
  - DRUG RESISTANCE [None]
  - RESPIRATORY FATIGUE [None]
